FAERS Safety Report 17662562 (Version 6)
Quarter: 2021Q3

REPORT INFORMATION
  Report Type: Report from Study
  Country: IT (occurrence: IT)
  Receive Date: 20200413
  Receipt Date: 20210826
  Transmission Date: 20211014
  Serious: Yes (Hospitalization)
  Sender: FDA-Public Use
  Company Number: NVSC2020IT094753

PATIENT
  Age: 41 Year
  Sex: Male
  Weight: 87 kg

DRUGS (16)
  1. COMPARATOR CISPLATIN [Suspect]
     Active Substance: CISPLATIN
     Indication: NON-SMALL CELL LUNG CANCER
     Dosage: 150 MG
     Route: 042
     Dates: start: 20191016
  2. COMPARATOR PEMETREXED [Suspect]
     Active Substance: PEMETREXED DISODIUM
     Indication: NON-SMALL CELL LUNG CANCER
     Dosage: 1000 MG
     Route: 042
     Dates: start: 20191016, end: 20200218
  3. XANAX [Concomitant]
     Active Substance: ALPRAZOLAM
     Indication: ANXIETY
     Dosage: UNK
     Route: 065
     Dates: start: 20200107
  4. PARACETAMOL [Concomitant]
     Active Substance: ACETAMINOPHEN
     Indication: CHEST PAIN
     Dosage: UNK
     Route: 065
     Dates: start: 20191016
  5. CANAKINUMAB. [Suspect]
     Active Substance: CANAKINUMAB
     Indication: NON-SMALL CELL LUNG CANCER
     Dosage: UNK
     Route: 058
     Dates: start: 20191016, end: 20200218
  6. DARUNAVIR [Concomitant]
     Active Substance: DARUNAVIR
     Indication: INTERSTITIAL LUNG DISEASE
     Dosage: UNK
     Route: 065
     Dates: start: 20200319, end: 20200403
  7. FOLINGRAV [Concomitant]
     Active Substance: FOLIC ACID
     Indication: CHEMOTHERAPY SIDE EFFECT PROPHYLAXIS
     Dosage: UNK
     Route: 065
     Dates: start: 20190919
  8. PLAQUENIL [Concomitant]
     Active Substance: HYDROXYCHLOROQUINE SULFATE
     Indication: INTERSTITIAL LUNG DISEASE
     Dosage: UNK
     Route: 065
     Dates: start: 20200319, end: 20200403
  9. COMPARATOR PEMBROLIZUMAB [Suspect]
     Active Substance: PEMBROLIZUMAB
     Indication: NON-SMALL CELL LUNG CANCER
     Dosage: 200 MG
     Route: 042
     Dates: start: 20191016, end: 20200107
  10. OMEPRAZOLE. [Concomitant]
     Active Substance: OMEPRAZOLE
     Indication: PROPHYLAXIS
     Dosage: UNK
     Route: 065
     Dates: start: 20190919
  11. RITONAVIR. [Concomitant]
     Active Substance: RITONAVIR
     Indication: INTERSTITIAL LUNG DISEASE
     Dosage: UNK
     Route: 065
     Dates: start: 20200319, end: 20200403
  12. PARACODIN [Concomitant]
     Indication: COUGH
     Dosage: 10.25 MG/ML
     Route: 065
     Dates: start: 20200107
  13. DOBETIN [Concomitant]
     Indication: CHEMOTHERAPY SIDE EFFECT PROPHYLAXIS
     Dosage: UNK
     Route: 065
     Dates: start: 20190919
  14. SELEPARINA [Concomitant]
     Active Substance: NADROPARIN CALCIUM
     Indication: PROPHYLAXIS
     Dosage: UNK
     Route: 065
     Dates: start: 20190919
  15. FERRONAM [Concomitant]
     Indication: ANAEMIA
     Dosage: UNK
     Route: 065
     Dates: start: 20200107
  16. TARGIN [Concomitant]
     Active Substance: NALOXONE HYDROCHLORIDE\OXYCODONE HYDROCHLORIDE
     Indication: CHEST PAIN
     Dosage: UNK
     Route: 065
     Dates: start: 20190919

REACTIONS (3)
  - Haemoptysis [Recovered/Resolved]
  - Anaemia [Recovered/Resolved]
  - Pneumonia bacterial [Recovered/Resolved]

NARRATIVE: CASE EVENT DATE: 20200324
